FAERS Safety Report 4652870-X (Version None)
Quarter: 2005Q2

REPORT INFORMATION
  Report Type: 
  Country: None (occurrence: None)
  Receive Date: 20050502
  Receipt Date: 20050419
  Transmission Date: 20051028
  Serious: Yes (Hospitalization)
  Sender: FDA-Public Use
  Company Number: B0378561A

PATIENT
  Age: 36 Year
  Sex: Male

DRUGS (5)
  1. ZIAGEN [Suspect]
     Indication: HIV INFECTION
     Dates: start: 20031101
  2. STAVUDINE [Concomitant]
  3. DIDANOSINE [Concomitant]
  4. NEVIRAPINE [Concomitant]
  5. LAMIVUDINE [Concomitant]

REACTIONS (9)
  - ARTHRALGIA [None]
  - BLISTER [None]
  - COUGH [None]
  - ERYTHEMA [None]
  - MALAISE [None]
  - MYALGIA [None]
  - PYREXIA [None]
  - SKIN LESION [None]
  - TOXIC EPIDERMAL NECROLYSIS [None]
